FAERS Safety Report 9845240 (Version 1)
Quarter: 2014Q1

REPORT INFORMATION
  Report Type: Spontaneous
  Country: US (occurrence: None)
  Receive Date: 20140123
  Receipt Date: 20140123
  Transmission Date: 20141002
  Serious: Yes (Other)
  Sender: FDA-Public Use
  Company Number: None

PATIENT
  Age: 73 Year
  Sex: Male
  Weight: 83.92 kg

DRUGS (1)
  1. MENTHOL [Suspect]
     Dates: start: 20140103

REACTIONS (4)
  - Pain [None]
  - Erythema [None]
  - Hypoaesthesia [None]
  - Insomnia [None]
